FAERS Safety Report 13585236 (Version 7)
Quarter: 2019Q1

REPORT INFORMATION
  Report Type: Report from Study
  Country: US (occurrence: CA)
  Receive Date: 20170526
  Receipt Date: 20190329
  Transmission Date: 20190417
  Serious: Yes (Other)
  Sender: FDA-Public Use
  Company Number: US-SUNOVION-2017SUN002225

PATIENT
  Age: 74 Year
  Sex: Female

DRUGS (9)
  1. XOLAIR [Suspect]
     Active Substance: OMALIZUMAB
     Dosage: UNK; REGIMEN #2
     Route: 058
     Dates: start: 20170517
  2. SYMBICORT [Concomitant]
     Active Substance: BUDESONIDE\FORMOTEROL FUMARATE DIHYDRATE
     Indication: ASTHMA
     Dosage: 2 UNK, UNK
     Dates: start: 201408
  3. XOLAIR [Suspect]
     Active Substance: OMALIZUMAB
     Indication: ASTHMA
     Dosage: 150 MG, EVERY 4 WEEKS
     Route: 058
     Dates: start: 20150519
  4. ALVESCO [Concomitant]
     Active Substance: CICLESONIDE
     Indication: ASTHMA
     Dosage: 2 UNK, UNK
     Route: 055
     Dates: start: 201408
  5. GLYCOPYRROLATE. [Suspect]
     Active Substance: GLYCOPYRROLATE
     Dosage: 1 DF (50 UG), UNK; REGIMEN #2
     Route: 055
     Dates: start: 201502
  6. VENTOLIN [Concomitant]
     Active Substance: ALBUTEROL SULFATE
     Indication: ASTHMA
     Dosage: 2 DF, PRN
     Dates: start: 201502
  7. GLYCOPYRROLATE. [Suspect]
     Active Substance: GLYCOPYRROLATE
     Indication: ASTHMA
     Dosage: UNK, QD
     Route: 055
     Dates: start: 2014
  8. XOLAIR [Suspect]
     Active Substance: OMALIZUMAB
     Dosage: 150 MG, EVERY 4 WEEKS
     Route: 058
     Dates: start: 20170905
  9. XOLAIR [Suspect]
     Active Substance: OMALIZUMAB
     Dosage: 150 MG, EVERY 4 WEEKS
     Route: 058
     Dates: start: 20190123

REACTIONS (20)
  - Arthritis [Unknown]
  - Arthralgia [Recovered/Resolved]
  - Vision blurred [Unknown]
  - Blood pressure systolic decreased [Unknown]
  - Chest discomfort [Unknown]
  - Sputum retention [Unknown]
  - Headache [Not Recovered/Not Resolved]
  - Sensitivity to weather change [Unknown]
  - Dizziness [Unknown]
  - Discomfort [Unknown]
  - Dyspnoea [Recovering/Resolving]
  - Lower respiratory tract congestion [Unknown]
  - Dyspnoea exertional [Unknown]
  - Infection [Recovered/Resolved]
  - Chest pain [Unknown]
  - Wheezing [Unknown]
  - Injection site bruising [Recovered/Resolved]
  - Cough [Unknown]
  - Angina pectoris [Unknown]
  - Restlessness [Recovering/Resolving]

NARRATIVE: CASE EVENT DATE: 20150519
